FAERS Safety Report 15517218 (Version 2)
Quarter: 2018Q4

REPORT INFORMATION
  Report Type: Spontaneous
  Country: US (occurrence: US)
  Receive Date: 20181017
  Receipt Date: 20181030
  Transmission Date: 20190205
  Serious: Yes (Hospitalization)
  Sender: FDA-Public Use
  Company Number: US-JNJFOC-20181018979

PATIENT
  Sex: Male
  Weight: 56.7 kg

DRUGS (3)
  1. ZYTIGA [Suspect]
     Active Substance: ABIRATERONE ACETATE
     Indication: PROSTATE CANCER
     Dosage: 250 MG 4 TABLETS PER DAY
     Route: 048
     Dates: start: 2018, end: 20181011
  2. PREDNISONE. [Concomitant]
     Active Substance: PREDNISONE
     Dosage: ALONG WITH ABIRATERONE ACETATE
     Route: 065
  3. LUPRON [Concomitant]
     Active Substance: LEUPROLIDE ACETATE
     Indication: PROSTATE CANCER
     Route: 065
     Dates: start: 2014

REACTIONS (1)
  - Intervertebral disc compression [Unknown]
